FAERS Safety Report 6037990-X (Version None)
Quarter: 2009Q1

REPORT INFORMATION
  Report Type: 
  Country: None (occurrence: None)
  Receive Date: 20090114
  Receipt Date: 20090114
  Transmission Date: 20090719
  Serious: Yes (Life-Threatening, Hospitalization)
  Sender: FDA-Public Use
  Company Number: None

PATIENT
  Age: 75 Year
  Sex: Female
  Weight: 73 kg

DRUGS (1)
  1. RANEXA [Suspect]
     Dosage: 1000 MG BID PO ^FAIRLY RECENTLY^
     Route: 048

REACTIONS (2)
  - CONVULSION [None]
  - HYPERTENSIVE EMERGENCY [None]
